FAERS Safety Report 20086509 (Version 1)
Quarter: 2021Q4

REPORT INFORMATION
  Report Type: Spontaneous
  Country: US (occurrence: None)
  Receive Date: 20211118
  Receipt Date: 20211118
  Transmission Date: 20220303
  Serious: Yes (Life-Threatening)
  Sender: FDA-Public Use
  Company Number: None

PATIENT
  Age: 66 Year
  Sex: Male
  Weight: 93 kg

DRUGS (1)
  1. BARICITINIB [Suspect]
     Active Substance: BARICITINIB
     Indication: COVID-19 pneumonia
     Dosage: FREQUENCY : DAILY;?
     Route: 048
     Dates: start: 20211013, end: 20211022

REACTIONS (2)
  - Arterial occlusive disease [None]
  - General physical health deterioration [None]

NARRATIVE: CASE EVENT DATE: 20211022
